FAERS Safety Report 4828520-6 (Version None)
Quarter: 2005Q4

REPORT INFORMATION
  Report Type: 
  Country: None (occurrence: None)
  Receive Date: 20051110
  Receipt Date: 20050713
  Transmission Date: 20060501
  Serious: Yes (Other)
  Sender: FDA-Public Use
  Company Number: 2005-CZ-00161

PATIENT
  Age: 40 Year
  Sex: Male

DRUGS (3)
  1. TRAMADOL HCL [Suspect]
     Dosage: 50 MG/DAY TO 100 MG QDS/PRN, ORAL
     Route: 048
  2. AMITRIPTYLINE HCL [Suspect]
  3. GABAPENTIN [Concomitant]

REACTIONS (2)
  - DRUG INTERACTION [None]
  - DYSTONIA [None]
